FAERS Safety Report 14077510 (Version 3)
Quarter: 2018Q1

REPORT INFORMATION
  Report Type: Spontaneous
  Country: JP (occurrence: JP)
  Receive Date: 20171012
  Receipt Date: 20180314
  Transmission Date: 20180508
  Serious: Yes (Other)
  Sender: FDA-Public Use
  Company Number: JP-BRISTOL-MYERS SQUIBB COMPANY-BMS-2017-089942

PATIENT
  Sex: Male

DRUGS (2)
  1. REVLIMID [Suspect]
     Active Substance: LENALIDOMIDE
     Indication: PLASMA CELL MYELOMA
     Dosage: 5 MG, QD
     Route: 048
     Dates: start: 20170720
  2. EMPLICITI [Suspect]
     Active Substance: ELOTUZUMAB
     Indication: PLASMA CELL MYELOMA
     Dosage: 300 MG, QWK
     Route: 041
     Dates: start: 20170720

REACTIONS (2)
  - Cytomegalovirus enterocolitis [Recovered/Resolved]
  - Diarrhoea [Unknown]

NARRATIVE: CASE EVENT DATE: 20170914
